FAERS Safety Report 9097045 (Version 1)
Quarter: 2013Q1

REPORT INFORMATION
  Report Type: Spontaneous
  Country: AR (occurrence: None)
  Receive Date: 20130125
  Receipt Date: 20130125
  Transmission Date: 20140127
  Serious: Yes (Hospitalization, Other)
  Sender: FDA-Public Use
  Company Number: 2013P1000861

PATIENT
  Age: 41 Year
  Sex: Male

DRUGS (7)
  1. ISONIAZID [Suspect]
     Indication: PULMONARY TUBERCULOSIS
  2. ISONIAZID [Suspect]
     Indication: LARYNGEAL DISORDER
  3. ISONIAZID [Suspect]
     Indication: TUBERCULOSIS
  4. RIFAMPICIN [Suspect]
     Indication: PULMONARY TUBERCULOSIS
  5. RIFAMPICIN [Suspect]
     Indication: LARYNGEAL DISORDER
  6. RIFAMPICIN [Suspect]
     Indication: TUBERCULOSIS
  7. ETHAMBUTOL [Concomitant]

REACTIONS (2)
  - Drug reaction with eosinophilia and systemic symptoms [None]
  - Staphylococcal sepsis [None]
